FAERS Safety Report 6018965-3 (Version None)
Quarter: 2008Q4

REPORT INFORMATION
  Report Type: 
  Country: None (occurrence: None)
  Receive Date: 20081221
  Receipt Date: 20081221
  Transmission Date: 20090506
  Serious: Yes (Other)
  Sender: FDA-Public Use
  Company Number: None

PATIENT
  Sex: Female
  Weight: 95.2554 kg

DRUGS (2)
  1. CITALOPRAM HYDROBROMIDE [Suspect]
     Indication: DEPRESSION
     Dosage: 1 DAILY
     Dates: start: 20071015, end: 20080710
  2. CELEXA [Suspect]

REACTIONS (5)
  - CEREBRAL DISORDER [None]
  - DISTURBANCE IN ATTENTION [None]
  - FRUSTRATION [None]
  - MEMORY IMPAIRMENT [None]
  - VISUAL IMPAIRMENT [None]
